FAERS Safety Report 21688670 (Version 1)
Quarter: 2022Q4

REPORT INFORMATION
  Report Type: Spontaneous
  Country: US (occurrence: None)
  Receive Date: 20221205
  Receipt Date: 20221205
  Transmission Date: 20230113
  Serious: Yes (Congenital Anomaly)
  Sender: FDA-Public Use
  Company Number: None

PATIENT
  Age: 28 Year
  Sex: Female

DRUGS (1)
  1. ISOTRETINOIN [Suspect]
     Active Substance: ISOTRETINOIN
     Dosage: FREQUENCY : DAILY;?
     Dates: start: 20221110, end: 20221202

REACTIONS (2)
  - Treatment noncompliance [None]
  - Product communication issue [None]

NARRATIVE: CASE EVENT DATE: 20221202
